FAERS Safety Report 6222050-5 (Version None)
Quarter: 2009Q2

REPORT INFORMATION
  Report Type: 
  Country: None (occurrence: None)
  Receive Date: 20090609
  Receipt Date: 20090602
  Transmission Date: 20091009
  Serious: Yes (Hospitalization)
  Sender: FDA-Public Use
  Company Number: TPA2009A01151

PATIENT
  Age: 79 Year
  Sex: Male
  Weight: 72.5755 kg

DRUGS (2)
  1. PREVPAC [Suspect]
     Indication: HELICOBACTER INFECTION
     Dosage: 0.5 CARD, 2 IN 1 SEC, PER ORAL
     Route: 048
     Dates: start: 20090429, end: 20090501
  2. PREVPAC [Suspect]
     Indication: IRON DEFICIENCY
     Dosage: 0.5 CARD, 2 IN 1 SEC, PER ORAL
     Route: 048
     Dates: start: 20090429, end: 20090501

REACTIONS (7)
  - APHASIA [None]
  - ASTHENIA [None]
  - DYSSTASIA [None]
  - HYPERHIDROSIS [None]
  - HYPOPHAGIA [None]
  - MALAISE [None]
  - NIGHT SWEATS [None]
